FAERS Safety Report 23437171 (Version 1)
Quarter: 2024Q1

REPORT INFORMATION
  Report Type: Report from Study
  Country: US (occurrence: US)
  Receive Date: 20240124
  Receipt Date: 20240124
  Transmission Date: 20240409
  Serious: Yes (Hospitalization, Other)
  Sender: FDA-Public Use
  Company Number: US-GILEAD-2024-0659173

PATIENT
  Sex: Female

DRUGS (5)
  1. AZTREONAM LYSINE [Suspect]
     Active Substance: AZTREONAM LYSINE
     Indication: Cystic fibrosis
     Dosage: 1 ML, TID (INHALE 1 ML (1 VIAL) VIA ALTERA NEBULIZER THREE TIMES DAILY, EVERY OTHER MONTH)
     Route: 055
  2. SYMBICORT [Concomitant]
     Active Substance: BUDESONIDE\FORMOTEROL FUMARATE DIHYDRATE
  3. IRON [Concomitant]
     Active Substance: IRON
  4. ENBREL [Concomitant]
     Active Substance: ETANERCEPT
  5. ARAVA [Concomitant]
     Active Substance: LEFLUNOMIDE

REACTIONS (4)
  - Cystic fibrosis [Unknown]
  - Respiratory syncytial virus infection [Unknown]
  - COVID-19 [Unknown]
  - Respiratory tract irritation [Unknown]
